FAERS Safety Report 10163137 (Version 1)
Quarter: 2014Q2

REPORT INFORMATION
  Report Type: Spontaneous
  Country: US (occurrence: US)
  Receive Date: 20140509
  Receipt Date: 20140509
  Transmission Date: 20141212
  Serious: No
  Sender: FDA-Public Use
  Company Number: US-009507513-1405USA002115

PATIENT
  Age: 2 Year
  Sex: Female

DRUGS (4)
  1. CLARITIN ORAL SOLUTION [Suspect]
     Indication: SEASONAL ALLERGY
     Dosage: UNK, UNKNOWN
     Route: 048
  2. CLARITIN ORAL SOLUTION [Suspect]
     Indication: RESPIRATORY TRACT CONGESTION
  3. CLARITIN ORAL SOLUTION [Suspect]
     Indication: SNEEZING
  4. CLARITIN ORAL SOLUTION [Suspect]
     Indication: DISCOMFORT

REACTIONS (2)
  - Somnolence [Unknown]
  - Therapeutic response changed [Unknown]
